FAERS Safety Report 6417038-5 (Version None)
Quarter: 2009Q4

REPORT INFORMATION
  Report Type: 
  Country: None (occurrence: None)
  Receive Date: 20091026
  Receipt Date: 20070319
  Transmission Date: 20100525
  Serious: Yes (Other)
  Sender: FDA-Public Use
  Company Number: CHNY2007BE01377

PATIENT
  Age: 37 Year
  Sex: Female

DRUGS (2)
  1. PSEUDOEPHEDRINE (NCH) (PSEUDOEPHEDRINE  HYDROCHLORIDE) UNKNOWN [Suspect]
     Indication: BRONCHITIS
     Dosage: 480 MG, QD
  2. FLUOXETINE [Suspect]
     Dosage: 20 MG, QD

REACTIONS (3)
  - DRUG INTERACTION [None]
  - MANIA [None]
  - SEROTONIN SYNDROME [None]
